FAERS Safety Report 7474737-4 (Version None)
Quarter: 2011Q2

REPORT INFORMATION
  Report Type: 
  Country: None (occurrence: None)
  Receive Date: 20110509
  Receipt Date: 20110509
  Transmission Date: 20111010
  Serious: Yes (Other)
  Sender: FDA-Public Use
  Company Number: None

PATIENT
  Sex: Female

DRUGS (1)
  1. ENBREL [Suspect]
     Indication: ANKYLOSING SPONDYLITIS
     Dosage: 50 MG QW SQ
     Route: 058
     Dates: start: 20110407, end: 20110425

REACTIONS (4)
  - INJECTION SITE URTICARIA [None]
  - INJECTION SITE HAEMATOMA [None]
  - MIGRAINE [None]
  - PLEURISY [None]
